FAERS Safety Report 6527170-3 (Version None)
Quarter: 2010Q1

REPORT INFORMATION
  Report Type: 
  Country: None (occurrence: None)
  Receive Date: 20100105
  Receipt Date: 20091221
  Transmission Date: 20100710
  Serious: Yes (Other)
  Sender: FDA-Public Use
  Company Number: B0619824A

PATIENT
  Sex: Male

DRUGS (2)
  1. PANDEMRIX H1N1 [Suspect]
     Dosage: .25ML PER DAY
     Route: 030
     Dates: start: 20091126, end: 20091126
  2. AMOXICILLIN TRIHYDRATE [Suspect]
     Route: 048
     Dates: start: 20091125, end: 20091125

REACTIONS (1)
  - JAUNDICE [None]
